FAERS Safety Report 7298702-5 (Version None)
Quarter: 2011Q1

REPORT INFORMATION
  Report Type: 
  Country: None (occurrence: None)
  Receive Date: 20110204
  Receipt Date: 20110131
  Transmission Date: 20110831
  Serious: Yes (Death)
  Sender: FDA-Public Use
  Company Number: 2011SP004641

PATIENT
  Age: 66 Year
  Sex: Female
  Weight: 58.8 kg

DRUGS (12)
  1. TEMODAL [Suspect]
     Indication: GLIOBLASTOMA MULTIFORME
     Dosage: 75, 150, 200 MG/M2, QD, PO
     Route: 048
     Dates: start: 20061128, end: 20061202
  2. TEMODAL [Suspect]
     Indication: GLIOBLASTOMA MULTIFORME
     Dosage: 75, 150, 200 MG/M2, QD, PO
     Route: 048
     Dates: start: 20070529, end: 20070602
  3. TEMODAL [Suspect]
     Indication: GLIOBLASTOMA MULTIFORME
     Dosage: 75, 150, 200 MG/M2, QD, PO
     Route: 048
     Dates: start: 20070925, end: 20070929
  4. TEMODAL [Suspect]
     Indication: GLIOBLASTOMA MULTIFORME
     Dosage: 75, 150, 200 MG/M2, QD, PO
     Route: 048
     Dates: start: 20070227, end: 20070303
  5. TEMODAL [Suspect]
     Indication: GLIOBLASTOMA MULTIFORME
     Dosage: 75, 150, 200 MG/M2, QD, PO
     Route: 048
     Dates: start: 20070828, end: 20070901
  6. TEMODAL [Suspect]
     Indication: GLIOBLASTOMA MULTIFORME
     Dosage: 75, 150, 200 MG/M2, QD, PO
     Route: 048
     Dates: start: 20070130, end: 20070203
  7. TEMODAL [Suspect]
     Indication: GLIOBLASTOMA MULTIFORME
     Dosage: 75, 150, 200 MG/M2, QD, PO
     Route: 048
     Dates: start: 20070327, end: 20070331
  8. TEMODAL [Suspect]
     Indication: GLIOBLASTOMA MULTIFORME
     Dosage: 75, 150, 200 MG/M2, QD, PO
     Route: 048
     Dates: start: 20070731, end: 20070804
  9. TEMODAL [Suspect]
     Indication: GLIOBLASTOMA MULTIFORME
     Dosage: 75, 150, 200 MG/M2, QD, PO
     Route: 048
     Dates: start: 20060921, end: 20061101
  10. TEMODAL [Suspect]
     Indication: GLIOBLASTOMA MULTIFORME
     Dosage: 75, 150, 200 MG/M2, QD, PO
     Route: 048
     Dates: start: 20070424, end: 20070428
  11. TEMODAL [Suspect]
     Indication: GLIOBLASTOMA MULTIFORME
     Dosage: 75, 150, 200 MG/M2, QD, PO
     Route: 048
     Dates: start: 20070703, end: 20070707
  12. TEMODAL [Suspect]
     Indication: GLIOBLASTOMA MULTIFORME
     Dosage: 75, 150, 200 MG/M2, QD, PO
     Route: 048
     Dates: start: 20061226, end: 20061230

REACTIONS (1)
  - WHITE BLOOD CELL COUNT DECREASED [None]
